FAERS Safety Report 19270836 (Version 2)
Quarter: 2021Q2

REPORT INFORMATION
  Report Type: Report from Study
  Country: None (occurrence: CA)
  Receive Date: 20210518
  Receipt Date: 20210606
  Transmission Date: 20210717
  Serious: Yes (Other)
  Sender: FDA-Public Use
  Company Number: CA-ABBVIE-21K-028-3906399-00

PATIENT
  Age: 62 Year
  Sex: Male

DRUGS (1)
  1. SKYRIZI [Suspect]
     Active Substance: RISANKIZUMAB-RZAA
     Indication: PSORIASIS
     Route: 058
     Dates: start: 20190605, end: 20210217

REACTIONS (4)
  - Weight decreased [Unknown]
  - Oesophageal carcinoma [Not Recovered/Not Resolved]
  - Decreased appetite [Unknown]
  - Dysphagia [Unknown]

NARRATIVE: CASE EVENT DATE: 202103
